FAERS Safety Report 6479522-8 (Version None)
Quarter: 2009Q4

REPORT INFORMATION
  Report Type: 
  Country: None (occurrence: None)
  Receive Date: 20091207
  Receipt Date: 20091207
  Transmission Date: 20100525
  Serious: Yes (Other)
  Sender: FDA-Public Use
  Company Number: None

PATIENT
  Age: 85 Year
  Sex: Female

DRUGS (1)
  1. DILAUDID [Suspect]
     Indication: PAIN
     Dosage: 0.2MG WITH 8 MINUTES LOCK OUT IV
     Route: 042

REACTIONS (3)
  - BODY TEMPERATURE INCREASED [None]
  - RESPIRATORY RATE DECREASED [None]
  - SOMNOLENCE [None]
